FAERS Safety Report 20107120 (Version 1)
Quarter: 2021Q4

REPORT INFORMATION
  Report Type: Spontaneous
  Country: US (occurrence: None)
  Receive Date: 20211123
  Receipt Date: 20211123
  Transmission Date: 20220303
  Serious: Yes (Hospitalization)
  Sender: FDA-Public Use
  Company Number: None

PATIENT
  Sex: Male

DRUGS (1)
  1. PEMBROLIZUMAB [Suspect]
     Active Substance: PEMBROLIZUMAB
     Indication: Prostate cancer metastatic
     Dosage: OTHER FREQUENCY : EVERY 3 WEEKS ;?
     Route: 042
     Dates: start: 20210811, end: 20210920

REACTIONS (4)
  - Acute kidney injury [None]
  - Hyperkalaemia [None]
  - Anaemia [None]
  - Malignant neoplasm progression [None]

NARRATIVE: CASE EVENT DATE: 20211122
